FAERS Safety Report 20544629 (Version 2)
Quarter: 2022Q1

REPORT INFORMATION
  Report Type: Spontaneous
  Country: GB (occurrence: GB)
  Receive Date: 20220303
  Receipt Date: 20220314
  Transmission Date: 20220423
  Serious: Yes (Other)
  Sender: FDA-Public Use
  Company Number: GB-ADVANZ PHARMA-202202001144

PATIENT

DRUGS (1)
  1. PREDNISOLONE [Suspect]
     Active Substance: PREDNISOLONE
     Indication: Acute macular neuroretinopathy
     Dosage: 1 MG/KG
     Route: 048

REACTIONS (4)
  - Acute macular neuroretinopathy [Unknown]
  - Disease progression [Unknown]
  - Therapeutic response decreased [Unknown]
  - Off label use [Unknown]
